FAERS Safety Report 9551546 (Version 1)
Quarter: 2013Q3

REPORT INFORMATION
  Report Type: Spontaneous
  Country: US (occurrence: None)
  Receive Date: 20130724
  Receipt Date: 20130724
  Transmission Date: 20140515
  Serious: Yes (Other)
  Sender: FDA-Public Use
  Company Number: PHEH2013US005317

PATIENT
  Age: 36 Year
  Sex: Female

DRUGS (9)
  1. AFINITOR (RAD) TABLET, 10MG [Suspect]
     Indication: TUBEROUS SCLEROSIS
     Route: 048
     Dates: start: 20120725
  2. AFINITOR (RAD) TABLET, 10MG [Suspect]
     Indication: ANGIOMYOLIPOMA
     Route: 048
     Dates: start: 20120725
  3. IRON (IRON) [Concomitant]
  4. METOPROLOL (METOPROLOL) [Concomitant]
  5. SIMVASTATIN (SIMVASTATIN) [Concomitant]
  6. NORTRIPTYLIN (NORTRIPTYLINE HYDROCHLORIDE) [Concomitant]
  7. DEXILANT (DEXLANSOPRAZOLE) [Concomitant]
  8. NEXIUM HP (AMOXICILLIN TRIHYDRATE, CLARITHROMYCIN, ESOMEPRAZOLE MAGNESUIM) [Concomitant]
  9. LANTUS (INSULIN GLARGINE) [Concomitant]

REACTIONS (7)
  - Blood cholesterol increased [None]
  - Haemoglobin decreased [None]
  - Blood triglycerides increased [None]
  - Blood creatine increased [None]
  - Blood glucose increased [None]
  - Menstruation irregular [None]
  - Glycosylated haemoglobin increased [None]
